FAERS Safety Report 19283574 (Version 5)
Quarter: 2021Q3

REPORT INFORMATION
  Report Type: Report from Study
  Country: US (occurrence: US)
  Receive Date: 20210521
  Receipt Date: 20210803
  Transmission Date: 20211014
  Serious: No
  Sender: FDA-Public Use
  Company Number: NVSC2021US106210

PATIENT
  Sex: Female

DRUGS (1)
  1. KESIMPTA [Suspect]
     Active Substance: OFATUMUMAB
     Indication: PRODUCT USED FOR UNKNOWN INDICATION
     Dosage: UNK
     Route: 065

REACTIONS (10)
  - Migraine [Unknown]
  - Chills [Recovered/Resolved]
  - Fatigue [Unknown]
  - Fatigue [Recovered/Resolved]
  - Inappropriate schedule of product administration [Unknown]
  - Ear infection [Unknown]
  - Headache [Recovered/Resolved]
  - Rash [Unknown]
  - Pyrexia [Recovered/Resolved]
  - Feeling abnormal [Unknown]
